FAERS Safety Report 6232834-5 (Version None)
Quarter: 2009Q2

REPORT INFORMATION
  Report Type: 
  Country: None (occurrence: None)
  Receive Date: 20090617
  Receipt Date: 20080514
  Transmission Date: 20091009
  Serious: No
  Sender: FDA-Public Use
  Company Number: US-ASTRAZENECA-2008UW10024

PATIENT
  Age: 74 Year
  Sex: Female
  Weight: 55.8 kg

DRUGS (2)
  1. FASLODEX [Suspect]
     Indication: BREAST CANCER STAGE I
     Route: 030
     Dates: start: 20080101, end: 20080201
  2. LEVSIN [Concomitant]

REACTIONS (4)
  - ASTHENIA [None]
  - FATIGUE [None]
  - HIGH DENSITY LIPOPROTEIN DECREASED [None]
  - ILL-DEFINED DISORDER [None]
